FAERS Safety Report 8363525-2 (Version None)
Quarter: 2012Q2

REPORT INFORMATION
  Report Type: 
  Country: None (occurrence: None)
  Receive Date: 20120516
  Receipt Date: 20120507
  Transmission Date: 20120825
  Serious: Yes (Hospitalization)
  Sender: FDA-Public Use
  Company Number: BR-ASTRAZENECA-2012SE29810

PATIENT
  Age: 57 Year
  Sex: Female
  Weight: 75 kg

DRUGS (1)
  1. ATACAND HCT [Suspect]
     Dosage: 16+12.5 MG
     Route: 048
     Dates: start: 20110101, end: 20120401

REACTIONS (4)
  - ARRHYTHMIA [None]
  - SYNCOPE [None]
  - DIZZINESS [None]
  - BLOOD PRESSURE INCREASED [None]
